FAERS Safety Report 12250240 (Version 1)
Quarter: 2016Q2

REPORT INFORMATION
  Report Type: Report from Study
  Country: US (occurrence: US)
  Receive Date: 20160408
  Receipt Date: 20160408
  Transmission Date: 20160815
  Serious: Yes (Other)
  Sender: FDA-Public Use
  Company Number: US-ASTRAZENECA-2016SE35173

PATIENT

DRUGS (3)
  1. CAPECITABINE. [Suspect]
     Active Substance: CAPECITABINE
     Indication: NEOPLASM MALIGNANT
     Dosage: 850 MG/M2 TWICE A DAY.
     Route: 048
  2. VANDETANIB. [Suspect]
     Active Substance: VANDETANIB
     Indication: NEOPLASM MALIGNANT
     Dosage: 200 OR 300 MG DAILY
     Route: 048
  3. GEMCITABINE [Suspect]
     Active Substance: GEMCITABINE\GEMCITABINE HYDROCHLORIDE
     Indication: NEOPLASM MALIGNANT
     Route: 042

REACTIONS (2)
  - Toxicity to various agents [Unknown]
  - Neutropenia [Unknown]
